FAERS Safety Report 9613290 (Version 1)
Quarter: 2013Q3

REPORT INFORMATION
  Report Type: Spontaneous
  Country: CA (occurrence: None)
  Receive Date: 20130918
  Receipt Date: 20130918
  Transmission Date: 20140515
  Serious: Yes (Other)
  Sender: FDA-Public Use
  Company Number: 2013037951

PATIENT
  Age: 82 Year
  Sex: Male

DRUGS (17)
  1. PRIVIGEN [Suspect]
     Indication: MYASTHENIA GRAVIS
     Route: 042
     Dates: start: 20130807
  2. INSULIN (INSULIN) [Concomitant]
  3. ENOXAPARIN SODIUM (ENOXAPARIN SODIUM) [Concomitant]
  4. DOCUSATE SODIUM (DOCUSATE SODIUM) [Concomitant]
  5. LEVOFLOXACIN (LEVOFLOXACIN) [Concomitant]
  6. LAXATIVES (LAXATIVES) [Concomitant]
  7. ACETAMINOPHEN (PARACETAMOL) [Concomitant]
  8. ALL OTHER NON-THERAPEUTIC PRODUCTS [Concomitant]
  9. FUROSEMIDE (FUROSEMIDE) [Concomitant]
  10. PYRIDOSTIGMINE BROMIDE (PYRIDOSTIGMINE BROMIDE) [Concomitant]
  11. FENTANYL CITRATE (FENTANYL CITRATE) [Concomitant]
  12. PROPOFOL (PROPOFOL) [Concomitant]
  13. DIPHENHYDRAMINE (DIPHENHYDRAMINE) [Concomitant]
  14. SODIUM CHLORIDE [Concomitant]
  15. ASPIRIN (ACETYLSALICYLIC ACID) [Concomitant]
  16. METFORMIN (METFORMIN) [Concomitant]
  17. PLAVIX (CLOPIDOGREL) [Concomitant]

REACTIONS (2)
  - Anaphylactic reaction [None]
  - Haemoglobin decreased [None]
